FAERS Safety Report 14378359 (Version 1)
Quarter: 2018Q1

REPORT INFORMATION
  Report Type: Spontaneous
  Country: US (occurrence: US)
  Receive Date: 20180111
  Receipt Date: 20180111
  Transmission Date: 20180509
  Serious: No
  Sender: FDA-Public Use
  Company Number: US-ASTRAZENECA-2017SF29633

PATIENT
  Age: 14333 Day
  Sex: Female
  Weight: 99.8 kg

DRUGS (1)
  1. BYETTA [Suspect]
     Active Substance: EXENATIDE
     Indication: TYPE 2 DIABETES MELLITUS
     Route: 058

REACTIONS (4)
  - Nervousness [Unknown]
  - Drug dose omission [Not Recovered/Not Resolved]
  - Nausea [Unknown]
  - Device malfunction [Unknown]

NARRATIVE: CASE EVENT DATE: 20171217
